FAERS Safety Report 8282497-2 (Version None)
Quarter: 2012Q2

REPORT INFORMATION
  Report Type: 
  Country: None (occurrence: None)
  Receive Date: 20120413
  Receipt Date: 20120404
  Transmission Date: 20120825
  Serious: Yes (Hospitalization)
  Sender: FDA-Public Use
  Company Number: SE-ASTRAZENECA-2012SE18029

PATIENT
  Age: 72 Year
  Sex: Male

DRUGS (9)
  1. BRILIQUE [Suspect]
     Indication: CARDIAC DISORDER
     Route: 048
     Dates: end: 20120305
  2. LIPITOR [Concomitant]
  3. NEORAL [Interacting]
     Dosage: 100+75 MG DAILY
     Route: 048
  4. PREDNISOLONE [Concomitant]
  5. ARIXTRA [Concomitant]
  6. RAMIPRIL [Concomitant]
  7. METOPROLOL SUCCINATE [Concomitant]
  8. NEORAL [Interacting]
     Dosage: 50+70 MG DAILY
     Route: 048
  9. NEORAL [Interacting]
     Dosage: 50+50 MG DAILY
     Route: 048

REACTIONS (3)
  - DRUG THERAPEUTIC INCOMPATIBILITY [None]
  - MYOCARDIAL INFARCTION [None]
  - POTENTIATING DRUG INTERACTION [None]
